FAERS Safety Report 21889791 (Version 3)
Quarter: 2024Q3

REPORT INFORMATION
  Report Type: Spontaneous
  Country: US (occurrence: US)
  Receive Date: 20230120
  Receipt Date: 20240829
  Transmission Date: 20241017
  Serious: No
  Sender: PFIZER
  Company Number: US-PFIZER INC-PV202300010717

PATIENT
  Age: 40 Year
  Sex: Female

DRUGS (1)
  1. IBRANCE [Suspect]
     Active Substance: PALBOCICLIB
     Dosage: 125 MG

REACTIONS (4)
  - Cystitis escherichia [Unknown]
  - Diarrhoea [Unknown]
  - COVID-19 [Unknown]
  - Product administration interrupted [Unknown]
